FAERS Safety Report 8826510 (Version 1)
Quarter: 2012Q4

REPORT INFORMATION
  Report Type: 
  Country: CA (occurrence: CA)
  Receive Date: 20121008
  Receipt Date: 20121008
  Transmission Date: 20130627
  Serious: Yes (Other)
  Sender: FDA-Public Use
  Company Number: PHHY2012CA075627

PATIENT
  Age: 56 Year
  Sex: Male

DRUGS (1)
  1. ZOMETA [Suspect]
     Indication: RENAL CELL CARCINOMA
     Dosage: 3.5 mg, every 8 weeks
     Dates: start: 20120823

REACTIONS (5)
  - Neoplasm progression [Unknown]
  - Malignant neoplasm progression [Unknown]
  - Brain neoplasm [Unknown]
  - Abdominal discomfort [Unknown]
  - Headache [Unknown]
